FAERS Safety Report 5032504-5 (Version None)
Quarter: 2006Q2

REPORT INFORMATION
  Report Type: 
  Country: None (occurrence: None)
  Receive Date: 20060620
  Receipt Date: 20060530
  Transmission Date: 20061013
  Serious: Yes (Other)
  Sender: FDA-Public Use
  Company Number: 9054

PATIENT
  Age: 42 Year
  Sex: Female

DRUGS (2)
  1. TOPICAL ANESTHETIC [Suspect]
     Indication: LOCAL ANAESTHESIA
     Dosage: TOPICAL
     Route: 061
  2. SEPTOCAINE [Suspect]
     Indication: LOCAL ANAESTHESIA
     Dosage: 1 CARPULE INJECTED

REACTIONS (3)
  - AGEUSIA [None]
  - HYPOAESTHESIA [None]
  - PARAESTHESIA [None]
